FAERS Safety Report 18260924 (Version 1)
Quarter: 2020Q3

REPORT INFORMATION
  Report Type: Spontaneous
  Country: CA (occurrence: CA)
  Receive Date: 20200914
  Receipt Date: 20200914
  Transmission Date: 20201103
  Serious: Yes (Other)
  Sender: FDA-Public Use
  Company Number: CA-ACCORD-200149

PATIENT
  Age: 48 Year
  Sex: Male

DRUGS (13)
  1. LACTAID [Concomitant]
     Active Substance: LACTASE
  2. CARVEDILOL/CARVEDILOL HYDROCHLODRIDE [Concomitant]
     Active Substance: CARVEDILOL HYDROCHLORIDE
  3. RANITIDINE. [Concomitant]
     Active Substance: RANITIDINE
  4. PEGFILGRASTIM [Concomitant]
     Active Substance: PEGFILGRASTIM
  5. TYLENOL [Concomitant]
     Active Substance: ACETAMINOPHEN
  6. ONDANSETRON [Concomitant]
     Active Substance: ONDANSETRON
  7. PROCHLORPERAZINE. [Concomitant]
     Active Substance: PROCHLORPERAZINE
  8. METOCLOPRAMIDE. [Concomitant]
     Active Substance: METOCLOPRAMIDE
  9. DEXAMETHASONE. [Concomitant]
     Active Substance: DEXAMETHASONE
  10. DALTEPARIN [Concomitant]
     Active Substance: DALTEPARIN
     Dosage: SOLUTION INTRAVENOUS
  11. FLUOROURACIL. [Suspect]
     Active Substance: FLUOROURACIL
     Indication: ADENOCARCINOMA
     Dosage: SOLUTION INTRAVENOUS, 1 EVERY 2 WEEKS
     Route: 040
  12. FILGRASTIM [Concomitant]
     Active Substance: FILGRASTIM
  13. PARACETAMOL [Concomitant]
     Active Substance: ACETAMINOPHEN

REACTIONS (3)
  - Ejection fraction decreased [Unknown]
  - Chest pain [Unknown]
  - Atrial fibrillation [Unknown]
